FAERS Safety Report 16652961 (Version 1)
Quarter: 2019Q3

REPORT INFORMATION
  Report Type: Spontaneous
  Country: US (occurrence: US)
  Receive Date: 20190731
  Receipt Date: 20190731
  Transmission Date: 20191004
  Serious: No
  Sender: FDA-Public Use
  Company Number: US-BIOMARINAP-US-2019-124904

PATIENT
  Sex: Female

DRUGS (1)
  1. KUVAN [Suspect]
     Active Substance: SAPROPTERIN DIHYDROCHLORIDE
     Indication: PHENYLKETONURIA
     Dosage: 1500 MILLIGRAM, QD
     Route: 065
     Dates: start: 20160307

REACTIONS (5)
  - Abdominal discomfort [Unknown]
  - Appetite disorder [Unknown]
  - Surgery [Unknown]
  - Product dose omission [Unknown]
  - Malaise [Unknown]
